FAERS Safety Report 9067503 (Version 2)
Quarter: 2013Q1

REPORT INFORMATION
  Report Type: Spontaneous
  Country: JP (occurrence: JP)
  Receive Date: 20130129
  Receipt Date: 20130219
  Transmission Date: 20140127
  Serious: Yes (Hospitalization, Other)
  Sender: FDA-Public Use
  Company Number: PHHY2013JP007735

PATIENT
  Age: 58 None
  Sex: Female
  Weight: 57 kg

DRUGS (4)
  1. ZOMETA [Suspect]
     Indication: METASTASES TO BONE
     Dosage: 4 MG, UNK
     Route: 041
     Dates: start: 20111018, end: 20121204
  2. VOLTAREN - SLOW RELEASE ^NOVARTIS^ [Concomitant]
     Dosage: 75 MG, UNK
     Route: 048
     Dates: start: 20120821
  3. TS-1 [Concomitant]
     Dosage: 100 MG, UNK
     Route: 048
     Dates: start: 20111115
  4. MUCOSTA [Concomitant]
     Dosage: 200 MG, UNK
     Route: 048

REACTIONS (3)
  - Femur fracture [Recovering/Resolving]
  - Fall [Unknown]
  - Musculoskeletal discomfort [Unknown]
